FAERS Safety Report 14368537 (Version 7)
Quarter: 2018Q4

REPORT INFORMATION
  Report Type: Spontaneous
  Country: US (occurrence: US)
  Receive Date: 20180109
  Receipt Date: 20181016
  Transmission Date: 20190204
  Serious: Yes (Hospitalization)
  Sender: FDA-Public Use
  Company Number: US-ACTELION-A-NJ2018-165353

PATIENT
  Age: 57 Year
  Sex: Male
  Weight: 70.75 kg

DRUGS (5)
  1. XARELTO [Concomitant]
     Active Substance: RIVAROXABAN
  2. OPSUMIT [Suspect]
     Active Substance: MACITENTAN
     Indication: PULMONARY ARTERIAL HYPERTENSION
     Dosage: 10 MG, QD
     Route: 048
     Dates: start: 20160104
  3. REMODULIN [Concomitant]
     Active Substance: TREPROSTINIL
     Route: 042
  4. ADCIRCA [Concomitant]
     Active Substance: TADALAFIL
  5. AMLODIPINE [Concomitant]
     Active Substance: AMLODIPINE BESYLATE

REACTIONS (14)
  - Pulmonary arterial hypertension [Unknown]
  - Biopsy lung [Unknown]
  - Disease progression [Unknown]
  - Vascular device infection [Recovered/Resolved]
  - Bacteraemia [Recovered/Resolved]
  - Vomiting [Recovered/Resolved]
  - Blood culture positive [Recovered/Resolved]
  - Hypotension [Recovered/Resolved]
  - Bradycardia [Recovered/Resolved]
  - Device occlusion [Unknown]
  - Chills [Recovered/Resolved]
  - Presyncope [Recovered/Resolved]
  - Lung transplant [Unknown]
  - Catheter site related reaction [Unknown]

NARRATIVE: CASE EVENT DATE: 20171206
